FAERS Safety Report 25736963 (Version 1)
Quarter: 2025Q3

REPORT INFORMATION
  Report Type: Spontaneous
  Country: CN (occurrence: CN)
  Receive Date: 20250828
  Receipt Date: 20250828
  Transmission Date: 20251021
  Serious: Yes (Death, Other)
  Sender: ALEXION PHARMACEUTICALS
  Company Number: CN-ASTRAZENECA-202508GLO018984CN

PATIENT
  Age: 60 Year
  Sex: Male

DRUGS (2)
  1. OSIMERTINIB [Suspect]
     Active Substance: OSIMERTINIB
     Indication: Lung adenocarcinoma
     Route: 065
  2. GEFITINIB [Suspect]
     Active Substance: GEFITINIB
     Indication: Lung adenocarcinoma
     Route: 065

REACTIONS (5)
  - Malignant neoplasm progression [Fatal]
  - Drug resistance [Fatal]
  - Acquired gene mutation [Fatal]
  - Malignant transformation [Fatal]
  - Metastases to central nervous system [Fatal]
